FAERS Safety Report 25719929 (Version 1)
Quarter: 2025Q3

REPORT INFORMATION
  Report Type: Spontaneous
  Country: US (occurrence: US)
  Receive Date: 20250825
  Receipt Date: 20250825
  Transmission Date: 20251021
  Serious: Yes (Hospitalization, Other)
  Sender: SANDOZ
  Company Number: US-NOVPHSZ-PHHY2018US137030

PATIENT
  Age: 61 Year
  Sex: Female

DRUGS (4)
  1. MYCOPHENOLATE MOFETIL [Suspect]
     Active Substance: MYCOPHENOLATE MOFETIL
     Indication: Immunosuppression
     Route: 065
  2. TACROLIMUS [Suspect]
     Active Substance: TACROLIMUS
     Indication: Immunosuppression
     Route: 065
  3. DAPSONE [Concomitant]
     Active Substance: DAPSONE
     Indication: Prophylaxis
     Route: 065
  4. VALGANCICLOVIR [Concomitant]
     Active Substance: VALGANCICLOVIR
     Indication: Prophylaxis
     Route: 065

REACTIONS (7)
  - Mycobacterial infection [Recovering/Resolving]
  - Thyroid tuberculosis [Recovering/Resolving]
  - Pyrexia [Unknown]
  - Chills [Unknown]
  - Thyroid gland abscess [Not Recovered/Not Resolved]
  - Unmasking of previously unidentified disease [Recovering/Resolving]
  - Jugular vein thrombosis [Unknown]
